FAERS Safety Report 10363854 (Version 1)
Quarter: 2014Q3

REPORT INFORMATION
  Report Type: Spontaneous
  Country: FR (occurrence: None)
  Receive Date: 20140801
  Receipt Date: 20140801
  Transmission Date: 20150326
  Serious: Yes (Other)
  Sender: FDA-Public Use
  Company Number: AUR-APL-2014-08124

PATIENT
  Age: 75 Year
  Sex: Male

DRUGS (14)
  1. OMEPRAZOLE (OMEPRAZOLE) [Concomitant]
     Active Substance: OMEPRAZOLE
  2. FUROSEMIDE (FUROSEMIDE) [Concomitant]
     Active Substance: FUROSEMIDE
  3. BISOPROLOL [Suspect]
     Active Substance: BISOPROLOL
     Indication: ACUTE CORONARY SYNDROME
     Route: 048
     Dates: start: 20140616
  4. CERIS (TROSPIUM CHLORIDE) [Concomitant]
  5. TAHOR [Concomitant]
     Active Substance: ATORVASTATIN CALCIUM
  6. METRONIDAZOLE. [Suspect]
     Active Substance: METRONIDAZOLE
     Indication: CHOLECYSTITIS
     Dates: start: 20140616, end: 20140628
  7. SODIUM HEPARIN [Suspect]
     Active Substance: HEPARIN SODIUM
     Indication: ACUTE CORONARY SYNDROME
     Route: 058
     Dates: start: 20140716
  8. PLAVIX [Suspect]
     Active Substance: CLOPIDOGREL BISULFATE
     Indication: ACUTE CORONARY SYNDROME
     Route: 048
     Dates: start: 20140616, end: 20140627
  9. KARDEGIC [Suspect]
     Active Substance: ASPIRIN LYSINE
     Indication: ACUTE CORONARY SYNDROME
     Route: 048
     Dates: start: 20140616
  10. PREVISCAN/00789001/ (FLU INDIONE) [Concomitant]
  11. EUPANTOL [Suspect]
     Active Substance: PANTOPRAZOLE SODIUM
     Indication: PROPHYLAXIS
     Route: 048
     Dates: start: 20140616, end: 20140624
  12. CORDARONE (AMIODARONE HYDROCHLORIDE) [Concomitant]
  13. CEFTRIAXONE. [Suspect]
     Active Substance: CEFTRIAXONE
     Indication: CHOLECYSTITIS
     Route: 042
     Dates: start: 20140616, end: 20140627
  14. PARACETAMOL (PARACETAMOL) [Concomitant]
     Active Substance: ACETAMINOPHEN

REACTIONS (2)
  - Neutropenia [None]
  - Platelet count decreased [None]

NARRATIVE: CASE EVENT DATE: 20140624
